FAERS Safety Report 8829885 (Version 1)
Quarter: 2012Q4

REPORT INFORMATION
  Report Type: 
  Country: AR (occurrence: AR)
  Receive Date: 20121008
  Receipt Date: 20121008
  Transmission Date: 20130627
  Serious: Yes (Other)
  Sender: FDA-Public Use
  Company Number: PHHY2012AR088010

PATIENT
  Sex: Female

DRUGS (2)
  1. EXELON PATCH [Suspect]
     Indication: DEMENTIA ALZHEIMER^S TYPE
     Dosage: 4.6 mg/24 hours (5cm)
     Route: 062
     Dates: end: 201202
  2. EXELON PATCH [Suspect]
     Dosage: 4.6 mg, daily(5cm)
     Route: 062

REACTIONS (4)
  - Herpes zoster [Recovered/Resolved]
  - Musculoskeletal chest pain [Unknown]
  - Pain [Unknown]
  - Memory impairment [Recovering/Resolving]
